FAERS Safety Report 22795665 (Version 3)
Quarter: 2024Q1

REPORT INFORMATION
  Report Type: Spontaneous
  Country: US (occurrence: US)
  Receive Date: 20230807
  Receipt Date: 20240112
  Transmission Date: 20240410
  Serious: Yes (Other)
  Sender: FDA-Public Use
  Company Number: US-Blueprint Medicines Corporation-1316

PATIENT
  Age: 66 Year
  Sex: Male

DRUGS (3)
  1. AYVAKIT [Suspect]
     Active Substance: AVAPRITINIB
     Indication: Gastrointestinal stromal tumour
     Route: 065
     Dates: start: 20220131
  2. AYVAKIT [Suspect]
     Active Substance: AVAPRITINIB
     Route: 065
     Dates: start: 20220131
  3. TAMSULOSIN HYDROCHLORIDE [Concomitant]
     Active Substance: TAMSULOSIN HYDROCHLORIDE
     Indication: Product used for unknown indication
     Route: 065

REACTIONS (9)
  - Hernia [Unknown]
  - Periorbital swelling [Unknown]
  - Hair colour changes [Unknown]
  - Lacrimation increased [Unknown]
  - Skin discolouration [Unknown]
  - Rash [Unknown]
  - Rash macular [Unknown]
  - Photosensitivity reaction [Recovering/Resolving]
  - Dysstasia [Unknown]
